FAERS Safety Report 17867328 (Version 1)
Quarter: 2020Q2

REPORT INFORMATION
  Report Type: Spontaneous
  Country: AR (occurrence: AR)
  Receive Date: 20200605
  Receipt Date: 20200605
  Transmission Date: 20200714
  Serious: Yes (Other)
  Sender: FDA-Public Use
  Company Number: AR-ABBVIE-20K-007-3430250-00

PATIENT
  Age: 7 Year
  Sex: Male

DRUGS (4)
  1. LAMIVUDINE. [Concomitant]
     Active Substance: LAMIVUDINE
     Indication: ANTIRETROVIRAL THERAPY
  2. ZIDOVUDINE. [Concomitant]
     Active Substance: ZIDOVUDINE
     Indication: ANTIRETROVIRAL THERAPY
  3. KALETRA [Suspect]
     Active Substance: LOPINAVIR\RITONAVIR
     Indication: ANTIRETROVIRAL THERAPY
     Route: 048
  4. FLUTICASONE. [Interacting]
     Active Substance: FLUTICASONE
     Indication: ASTHMATIC CRISIS
     Route: 055

REACTIONS (9)
  - Increased appetite [Unknown]
  - Cushing^s syndrome [Recovered/Resolved]
  - Asthmatic crisis [Unknown]
  - Adrenal insufficiency [Unknown]
  - Waist circumference increased [Recovered/Resolved]
  - Stress [Unknown]
  - Asthma [Unknown]
  - Hypothalamic pituitary adrenal axis suppression [Recovered/Resolved]
  - Drug interaction [Recovered/Resolved]
